FAERS Safety Report 9242312 (Version 1)
Quarter: 2013Q2

REPORT INFORMATION
  Report Type: Spontaneous
  Country: US (occurrence: US)
  Receive Date: 20130419
  Receipt Date: 20130419
  Transmission Date: 20140414
  Serious: Yes (Hospitalization)
  Sender: FDA-Public Use
  Company Number: US-JNJFOC-20130404632

PATIENT
  Age: 44 Year
  Sex: Female
  Weight: 59.88 kg

DRUGS (5)
  1. DURAGESIC [Suspect]
     Indication: PAIN
     Route: 062
  2. DURAGESIC [Suspect]
     Indication: PAIN
     Route: 062
     Dates: end: 201210
  3. DURAGESIC [Suspect]
     Indication: PAIN
     Route: 062
     Dates: start: 201210
  4. ZYRTEC [Concomitant]
     Indication: URTICARIA
     Route: 048
  5. ZYRTEC [Concomitant]
     Indication: MULTIPLE ALLERGIES
     Route: 048

REACTIONS (11)
  - Hypokinesia [Unknown]
  - Spinal operation [Recovered/Resolved]
  - Pain [Not Recovered/Not Resolved]
  - Pruritus [Not Recovered/Not Resolved]
  - Migraine [Unknown]
  - Product quality issue [Unknown]
  - Product quality issue [Unknown]
  - Drug effect decreased [Unknown]
  - Inappropriate schedule of drug administration [Recovered/Resolved]
  - Product quality issue [Unknown]
  - Wrong technique in drug usage process [Unknown]
